FAERS Safety Report 8391048-3 (Version None)
Quarter: 2012Q2

REPORT INFORMATION
  Report Type: 
  Country: None (occurrence: None)
  Receive Date: 20120529
  Receipt Date: 20120523
  Transmission Date: 20120825
  Serious: Yes (Death, Life-Threatening, Hospitalization)
  Sender: FDA-Public Use
  Company Number: FR-ASTRAZENECA-2012SE19838

PATIENT
  Age: 12114 Day
  Sex: Female

DRUGS (8)
  1. QUETIAPINE FUMARATE [Suspect]
     Indication: PSYCHOTIC DISORDER
     Route: 048
     Dates: end: 20120312
  2. CLOPIXOL [Concomitant]
     Dosage: TWO DOSAGE FORM IN 21 DAY
     Route: 030
     Dates: end: 20120312
  3. LOVENOX [Concomitant]
     Route: 058
     Dates: start: 20120312
  4. ZOPLICONE [Suspect]
     Indication: PSYCHOTIC DISORDER
     Dosage: 30 TABLETS
     Route: 048
     Dates: end: 20120312
  5. LOXAPINE HCL [Concomitant]
     Indication: PSYCHOTIC DISORDER
     Route: 048
  6. LEPTICUR [Concomitant]
     Indication: PSYCHOTIC DISORDER
     Route: 048
     Dates: end: 20120312
  7. AUGMENTIN [Concomitant]
     Indication: PNEUMONIA ASPIRATION
     Route: 042
     Dates: start: 20120312
  8. XANAX [Suspect]
     Indication: PSYCHOTIC DISORDER
     Route: 048
     Dates: end: 20120312

REACTIONS (3)
  - SUICIDE ATTEMPT [None]
  - PULMONARY EMBOLISM [None]
  - INTENTIONAL OVERDOSE [None]
